FAERS Safety Report 7945654-8 (Version None)
Quarter: 2011Q4

REPORT INFORMATION
  Report Type: 
  Country: None (occurrence: None)
  Receive Date: 20111129
  Receipt Date: 20111121
  Transmission Date: 20120403
  Serious: Yes (Death, Hospitalization, Other)
  Sender: FDA-Public Use
  Company Number: JP-CELGENEUS-087-21880-11042822

PATIENT
  Sex: Male

DRUGS (6)
  1. REVLIMID [Suspect]
     Indication: MULTIPLE MYELOMA
     Dosage: 15 MILLIGRAM
     Route: 048
     Dates: start: 20110126, end: 20110130
  2. FAMOTIDINE D [Concomitant]
     Indication: PROPHYLAXIS
     Dosage: 1 TABLET
     Route: 048
     Dates: start: 20110126, end: 20110131
  3. MUCODYNE [Concomitant]
     Dosage: 2 TABLET
     Route: 048
     Dates: start: 20110126, end: 20110131
  4. DEXAMETHASONE [Suspect]
     Indication: MULTIPLE MYELOMA
     Dosage: 12 MILLIGRAM
     Route: 048
     Dates: start: 20110126, end: 20110129
  5. ALLOPURINOL [Concomitant]
     Indication: PROPHYLAXIS
     Dosage: 2 TABLET
     Route: 048
     Dates: start: 20110126, end: 20110131
  6. TEGRETOL [Concomitant]
     Indication: ILL-DEFINED DISORDER
     Dosage: 1 TABLET
     Route: 048
     Dates: start: 20110126, end: 20110131

REACTIONS (3)
  - CARDIO-RESPIRATORY ARREST [None]
  - CEREBRAL INFARCTION [None]
  - DISSEMINATED INTRAVASCULAR COAGULATION [None]
